FAERS Safety Report 21386466 (Version 1)
Quarter: 2022Q3

REPORT INFORMATION
  Report Type: Spontaneous
  Country: JP (occurrence: JP)
  Receive Date: 20220928
  Receipt Date: 20220928
  Transmission Date: 20221026
  Serious: Yes (Hospitalization, Other)
  Sender: FDA-Public Use
  Company Number: JP-MTPC-MTPC2022-0025652

PATIENT
  Age: 54 Year
  Sex: Female

DRUGS (5)
  1. REMICADE [Suspect]
     Active Substance: INFLIXIMAB
     Indication: Rheumatoid arthritis
     Route: 041
  2. SIMPONI [Concomitant]
     Active Substance: GOLIMUMAB
     Dosage: 50 MILLIGRAM, QD
     Route: 065
  3. SIMPONI [Concomitant]
     Active Substance: GOLIMUMAB
     Dosage: 100 MILLIGRAM, QD
     Route: 065
  4. PREDNISOLONE [Concomitant]
     Active Substance: PREDNISOLONE
     Dosage: 5 MILLIGRAM, QD
     Route: 065
  5. METHOTREXATE [Concomitant]
     Active Substance: METHOTREXATE
     Indication: Rheumatoid arthritis
     Route: 048

REACTIONS (1)
  - Subarachnoid haemorrhage [Recovered/Resolved]
